FAERS Safety Report 18456651 (Version 2)
Quarter: 2020Q4

REPORT INFORMATION
  Report Type: Spontaneous
  Country: FR (occurrence: FR)
  Receive Date: 20201103
  Receipt Date: 20201106
  Transmission Date: 20210114
  Serious: Yes (Hospitalization, Other)
  Sender: FDA-Public Use
  Company Number: FR-TEVA-2020-FR-1843333

PATIENT
  Age: 86 Year
  Sex: Male

DRUGS (4)
  1. MODOPAR [Concomitant]
     Active Substance: BENSERAZIDE HYDROCHLORIDE\LEVODOPA
  2. ROPINIROL TEVA LP 8 MG [Suspect]
     Active Substance: ROPINIROLE HYDROCHLORIDE
     Dosage: TITRATING (GRADUALLY INCREASING THE DOSES)
     Route: 065
  3. ROPINIROL TEVA LP 8 MG [Suspect]
     Active Substance: ROPINIROLE HYDROCHLORIDE
     Dosage: 8 MILLIGRAM DAILY; 8 MG/DAY
     Route: 065
  4. ROPINIROL TEVA LP 8 MG [Suspect]
     Active Substance: ROPINIROLE HYDROCHLORIDE
     Dosage: AT A LOWER DOSE
     Route: 065
     Dates: end: 202007

REACTIONS (9)
  - Condition aggravated [Unknown]
  - Gait disturbance [Not Recovered/Not Resolved]
  - Dysstasia [Not Recovered/Not Resolved]
  - Hypersomnia [Not Recovered/Not Resolved]
  - Dyskinesia [Unknown]
  - Hallucination [Unknown]
  - Coma scale abnormal [Unknown]
  - Deprescribing error [Unknown]
  - Musculoskeletal stiffness [Not Recovered/Not Resolved]

NARRATIVE: CASE EVENT DATE: 2020
